FAERS Safety Report 12984563 (Version 8)
Quarter: 2018Q2

REPORT INFORMATION
  Report Type: Report from Study
  Country: US (occurrence: US)
  Receive Date: 20161129
  Receipt Date: 20180426
  Transmission Date: 20180711
  Serious: Yes (Hospitalization, Disabling)
  Sender: FDA-Public Use
  Company Number: US-SA-2016SA197445

PATIENT
  Age: 57 Year
  Sex: Female

DRUGS (3)
  1. LEMTRADA [Suspect]
     Active Substance: ALEMTUZUMAB
     Indication: MULTIPLE SCLEROSIS
     Route: 041
     Dates: start: 20161005, end: 20161009
  2. LEMTRADA [Suspect]
     Active Substance: ALEMTUZUMAB
     Indication: MULTIPLE SCLEROSIS
     Route: 041
     Dates: start: 20171011, end: 20171013
  3. SOLU-MEDROL [Concomitant]
     Active Substance: METHYLPREDNISOLONE SODIUM SUCCINATE
     Dates: start: 201610

REACTIONS (60)
  - Rash pruritic [Not Recovered/Not Resolved]
  - Mobility decreased [Recovered/Resolved]
  - Decreased activity [Recovered/Resolved]
  - Thirst [Unknown]
  - Erythema [Not Recovered/Not Resolved]
  - Dry skin [Recovered/Resolved]
  - Erythema [Not Recovered/Not Resolved]
  - Pruritus generalised [Unknown]
  - Pulmonary mass [Unknown]
  - Rash generalised [Recovered/Resolved]
  - Palpitations [Unknown]
  - Varicella [Unknown]
  - Visual impairment [Unknown]
  - Pyrexia [Recovered/Resolved]
  - Pneumonia [Recovered/Resolved]
  - Feeling abnormal [Unknown]
  - Asthenia [Recovered/Resolved]
  - Weight decreased [Recovered/Resolved]
  - Skin discolouration [Recovering/Resolving]
  - Nausea [Not Recovered/Not Resolved]
  - Gait disturbance [Recovered/Resolved]
  - Fatigue [Recovered/Resolved]
  - Lip swelling [Unknown]
  - Decreased appetite [Recovered/Resolved]
  - Chest pain [Unknown]
  - Musculoskeletal stiffness [Not Recovered/Not Resolved]
  - Hypoaesthesia [Not Recovered/Not Resolved]
  - Arthralgia [Unknown]
  - Pruritus [Recovered/Resolved]
  - Diarrhoea [Not Recovered/Not Resolved]
  - Apathy [Unknown]
  - Peripheral swelling [Recovering/Resolving]
  - Cystitis [Unknown]
  - Sensory disturbance [Unknown]
  - Pain [Unknown]
  - Neuralgia [Unknown]
  - Weight increased [Unknown]
  - Pyuria [Recovered/Resolved]
  - White blood cell count decreased [Recovered/Resolved]
  - Joint swelling [Recovering/Resolving]
  - Feeling abnormal [Unknown]
  - Tremor [Unknown]
  - Flatulence [Unknown]
  - Dyspnoea [Recovered/Resolved]
  - Vomiting [Recovered/Resolved]
  - Fall [Unknown]
  - Stress [Unknown]
  - Urinary tract infection [Recovered/Resolved]
  - Blood urine present [Recovered/Resolved]
  - Limb immobilisation [Recovered/Resolved]
  - Pain in extremity [Unknown]
  - Malaise [Recovered/Resolved]
  - Contusion [Not Recovered/Not Resolved]
  - Dysuria [Recovered/Resolved]
  - Feeling hot [Unknown]
  - Muscle spasms [Not Recovered/Not Resolved]
  - Acne [Recovered/Resolved]
  - Rash erythematous [Recovered/Resolved]
  - Crying [Unknown]
  - Neck pain [Not Recovered/Not Resolved]

NARRATIVE: CASE EVENT DATE: 2016
